FAERS Safety Report 5154739-3 (Version None)
Quarter: 2006Q4

REPORT INFORMATION
  Report Type: 
  Country: None (occurrence: None)
  Receive Date: 20061115
  Receipt Date: 20061115
  Transmission Date: 20070319
  Serious: Yes (Other)
  Sender: FDA-Public Use
  Company Number: None

PATIENT
  Age: 29 Year
  Sex: Female
  Weight: 65.7716 kg

DRUGS (1)
  1. MIRENA [Suspect]
     Indication: CONTRACEPTION
     Dates: start: 20060615, end: 20061103

REACTIONS (10)
  - ALOPECIA [None]
  - ANTINUCLEAR ANTIBODY POSITIVE [None]
  - ARTHRALGIA [None]
  - ARTHROPATHY [None]
  - FALL [None]
  - GAIT DISTURBANCE [None]
  - HAIR DISORDER [None]
  - IMPAIRED DRIVING ABILITY [None]
  - MUSCULOSKELETAL PAIN [None]
  - MYALGIA [None]
